FAERS Safety Report 8775232 (Version 3)
Quarter: 2014Q2

REPORT INFORMATION
  Report Type: Spontaneous
  Country: US (occurrence: US)
  Receive Date: 20120910
  Receipt Date: 20140515
  Transmission Date: 20141212
  Serious: Yes (Hospitalization, Other)
  Sender: FDA-Public Use
  Company Number: US-ROCHE-787578

PATIENT
  Age: 16 Year
  Sex: Male
  Weight: 77.18 kg

DRUGS (1)
  1. ACCUTANE [Suspect]
     Indication: ACNE
     Route: 065
     Dates: start: 19981217, end: 199905

REACTIONS (9)
  - Small intestinal obstruction [Unknown]
  - Crohn^s disease [Unknown]
  - Inflammatory bowel disease [Unknown]
  - Colitis ulcerative [Unknown]
  - Anal fistula [Unknown]
  - Perirectal abscess [Unknown]
  - Irritable bowel syndrome [Unknown]
  - Depression [Unknown]
  - Blood triglycerides increased [Unknown]
